FAERS Safety Report 8212785-7 (Version None)
Quarter: 2012Q1

REPORT INFORMATION
  Report Type: 
  Country: None (occurrence: None)
  Receive Date: 20120315
  Receipt Date: 20120229
  Transmission Date: 20120608
  Serious: Yes (Other)
  Sender: FDA-Public Use
  Company Number: US-ENDO PHARMACEUTICALS INC.-OPER20120257

PATIENT
  Sex: Female
  Weight: 56.75 kg

DRUGS (1)
  1. OPANA ER [Suspect]
     Indication: PAIN
     Route: 048
     Dates: start: 20111001, end: 20120220

REACTIONS (1)
  - WRONG TECHNIQUE IN DRUG USAGE PROCESS [None]
